FAERS Safety Report 26107829 (Version 1)
Quarter: 2025Q4

REPORT INFORMATION
  Report Type: Spontaneous
  Country: US (occurrence: US)
  Receive Date: 20251201
  Receipt Date: 20251201
  Transmission Date: 20260118
  Serious: No
  Sender: LEO PHARM
  Company Number: US-LEO Pharma-384548

PATIENT
  Age: 21 Year
  Sex: Female

DRUGS (2)
  1. ADBRY [Suspect]
     Active Substance: TRALOKINUMAB-LDRM
     Indication: Dystonia
     Dosage: TREATMENT ONGOING
     Dates: start: 202409
  2. ADBRY [Suspect]
     Active Substance: TRALOKINUMAB-LDRM
     Indication: Dermatitis atopic
     Dosage: TREATMENT ONGOING
     Dates: start: 202409

REACTIONS (3)
  - Burning sensation [Unknown]
  - Pruritus [Unknown]
  - Rash [Unknown]
